FAERS Safety Report 15558205 (Version 4)
Quarter: 2019Q2

REPORT INFORMATION
  Report Type: Report from Study
  Country: CO (occurrence: CO)
  Receive Date: 20181027
  Receipt Date: 20190612
  Transmission Date: 20190711
  Serious: Yes (Hospitalization, Other)
  Sender: FDA-Public Use
  Company Number: CO-ACTELION-A-CH2018-180923

PATIENT
  Age: 42 Year
  Sex: Female
  Weight: 47 kg

DRUGS (5)
  1. OPSUMIT [Suspect]
     Active Substance: MACITENTAN
     Dosage: 10 MG, QD
     Route: 048
     Dates: start: 201812
  2. OPSUMIT [Suspect]
     Active Substance: MACITENTAN
     Dosage: 0.5 DF, QD
     Route: 048
     Dates: start: 201809, end: 201812
  3. OPSUMIT [Suspect]
     Active Substance: MACITENTAN
     Dosage: 10 MG, OD
     Route: 048
     Dates: start: 20190404
  4. OPSUMIT [Suspect]
     Active Substance: MACITENTAN
     Indication: PULMONARY ARTERIAL HYPERTENSION
     Dosage: 10 MG, QD
     Route: 048
     Dates: start: 20170910, end: 201809
  5. SILDENAFIL. [Concomitant]
     Active Substance: SILDENAFIL
     Route: 048

REACTIONS (15)
  - Pulmonary arterial pressure increased [Not Recovered/Not Resolved]
  - Upper limb fracture [Recovering/Resolving]
  - Stress [Not Recovered/Not Resolved]
  - Headache [Not Recovered/Not Resolved]
  - Myocardial infarction [Not Recovered/Not Resolved]
  - Inflammation [Recovering/Resolving]
  - Asthenia [Not Recovered/Not Resolved]
  - Facial bones fracture [Recovering/Resolving]
  - Weight increased [Recovering/Resolving]
  - Therapeutic response decreased [Unknown]
  - Road traffic accident [Recovering/Resolving]
  - Neck pain [Not Recovered/Not Resolved]
  - Cardiac failure [Not Recovered/Not Resolved]
  - Chest injury [Recovering/Resolving]
  - Fluid retention [Recovering/Resolving]

NARRATIVE: CASE EVENT DATE: 201806
